FAERS Safety Report 17414240 (Version 2)
Quarter: 2020Q1

REPORT INFORMATION
  Report Type: Spontaneous
  Country: JP (occurrence: JP)
  Receive Date: 20200213
  Receipt Date: 20200326
  Transmission Date: 20200409
  Serious: Yes (Other)
  Sender: FDA-Public Use
  Company Number: JP-PFIZER INC-2020055249

PATIENT
  Age: 94 Year
  Sex: Male

DRUGS (1)
  1. ATARAX-P [Suspect]
     Active Substance: HYDROXYZINE HYDROCHLORIDE
     Dosage: 50 MG, UNK
     Route: 048

REACTIONS (1)
  - Delirium [Not Recovered/Not Resolved]
